FAERS Safety Report 19497539 (Version 5)
Quarter: 2024Q2

REPORT INFORMATION
  Report Type: Spontaneous
  Country: US (occurrence: US)
  Receive Date: 20210706
  Receipt Date: 20240625
  Transmission Date: 20240716
  Serious: Yes (Life-Threatening)
  Sender: FDA-Public Use
  Company Number: US-AMNEAL PHARMACEUTICALS-2021-AMRX-02418

PATIENT
  Age: 39 Year
  Sex: Female
  Weight: 100.68 kg

DRUGS (16)
  1. ACTIVELLA [Suspect]
     Active Substance: ESTRADIOL\NORETHINDRONE ACETATE
     Indication: Uterine leiomyoma
     Dosage: 1 DOSAGE FORM, 1 /DAY
     Route: 048
     Dates: start: 20190816, end: 20200730
  2. ACTIVELLA [Suspect]
     Active Substance: ESTRADIOL\NORETHINDRONE ACETATE
     Dosage: 1 DOSAGE FORM, 1 /DAY
     Route: 048
     Dates: start: 20200730, end: 20210617
  3. ACTIVELLA [Suspect]
     Active Substance: ESTRADIOL\NORETHINDRONE ACETATE
     Dosage: 1 DOSAGE FORM, 1 /DAY
     Route: 048
     Dates: start: 20210622
  4. ELAGOLIX [Suspect]
     Active Substance: ELAGOLIX
     Indication: Uterine leiomyoma
     Dosage: PM DOSE
     Route: 048
     Dates: start: 20190816, end: 20200730
  5. ELAGOLIX [Suspect]
     Active Substance: ELAGOLIX
     Dosage: 1 DOSAGE FORM, 2 /DAY (AM AND PM DOSE)
     Route: 048
     Dates: start: 20200730, end: 20210617
  6. ELAGOLIX [Suspect]
     Active Substance: ELAGOLIX
     Dosage: 1 DOSAGE FORM, 2 /DAY (AM AND PM DOSE)
     Route: 048
     Dates: start: 20210622
  7. CHOLECALCIFEROL [Concomitant]
     Active Substance: CHOLECALCIFEROL
     Indication: Vitamin D decreased
     Dosage: 50000 IU INTERNATIONAL UNIT(S), 1 /WEEK
     Route: 048
     Dates: start: 201902
  8. IBUPROFEN [Concomitant]
     Active Substance: IBUPROFEN
     Indication: Dysmenorrhoea
     Dosage: 800 MILLIGRAM, AS NEEDED
     Route: 048
     Dates: start: 201904
  9. IBUPROFEN [Concomitant]
     Active Substance: IBUPROFEN
     Indication: Migraine
  10. EXCEDRIN EXTRA STRENGTH [Concomitant]
     Active Substance: ACETAMINOPHEN\ASPIRIN\CAFFEINE
     Indication: Dysmenorrhoea
     Dosage: 1 DOSAGE FORM, AS NEEDED
     Route: 048
     Dates: start: 201901
  11. EXCEDRIN EXTRA STRENGTH [Concomitant]
     Active Substance: ACETAMINOPHEN\ASPIRIN\CAFFEINE
     Indication: Migraine
  12. FERROUS SULFATE [Concomitant]
     Active Substance: FERROUS SULFATE
     Indication: Blood iron decreased
     Dosage: 325 MILLIGRAM, 2 /DAY
     Route: 048
     Dates: start: 201903
  13. PRUNELAX [PRUNUS SPP.;SENNA SPP. LEAF] [Concomitant]
     Indication: Constipation
     Dosage: 1 TABLETS, AS NEEDED
     Route: 048
     Dates: start: 2014
  14. ATORVASTATIN [Concomitant]
     Active Substance: ATORVASTATIN
     Indication: Hyperlipidaemia
     Dosage: 40 MILLIGRAM, 1 /DAY
     Route: 048
     Dates: start: 20200730
  15. MOTRIN [Concomitant]
     Active Substance: IBUPROFEN
     Indication: Headache
     Dosage: 800 MILLIGRAM, AS NEEDED
     Route: 048
     Dates: start: 20190701
  16. MOTRIN [Concomitant]
     Active Substance: IBUPROFEN
     Indication: Eye pain

REACTIONS (3)
  - Suicidal ideation [Recovered/Resolved]
  - Depression [Recovered/Resolved]
  - Depression [Recovered/Resolved]

NARRATIVE: CASE EVENT DATE: 20210501
